FAERS Safety Report 7830400-9 (Version None)
Quarter: 2011Q4

REPORT INFORMATION
  Report Type: 
  Country: None (occurrence: None)
  Receive Date: 20111021
  Receipt Date: 20111011
  Transmission Date: 20120403
  Serious: Yes (Death, Hospitalization)
  Sender: FDA-Public Use
  Company Number: JP-PFIZER INC-2011249578

PATIENT
  Age: 76 Year
  Sex: Male

DRUGS (10)
  1. AMIODARONE HCL [Concomitant]
     Dosage: UNK
     Dates: end: 20101105
  2. MAGNESIUM OXIDE [Concomitant]
     Dosage: UNK
     Dates: end: 20101105
  3. ASPIRIN [Concomitant]
     Dosage: UNK
     Dates: end: 20101105
  4. PLETAL [Concomitant]
     Dosage: UNK
     Dates: end: 20101105
  5. CRESTOR [Concomitant]
     Dosage: UNK
     Dates: end: 20101105
  6. BIO THREE [Concomitant]
     Dosage: UNK
     Dates: end: 20101105
  7. LOSARTAN POTASSIUM [Concomitant]
     Dosage: UNK
     Dates: end: 20101105
  8. MIGLITOL [Suspect]
     Indication: TYPE 2 DIABETES MELLITUS
     Dosage: 50 MG, DAILY
     Route: 048
     Dates: start: 20101020, end: 20101110
  9. PANCREAZE [Concomitant]
     Dosage: UNK
     Dates: end: 20101105
  10. INNOLET 30R [Concomitant]
     Dosage: UNK
     Dates: end: 20101110

REACTIONS (1)
  - ACUTE MYOCARDIAL INFARCTION [None]
